FAERS Safety Report 15879594 (Version 2)
Quarter: 2019Q1

REPORT INFORMATION
  Report Type: Spontaneous
  Country: JP (occurrence: JP)
  Receive Date: 20190128
  Receipt Date: 20190218
  Transmission Date: 20190417
  Serious: Yes (Hospitalization, Other)
  Sender: FDA-Public Use
  Company Number: JP-ELI_LILLY_AND_COMPANY-JP201812012472

PATIENT
  Sex: Male
  Weight: 65 kg

DRUGS (8)
  1. BAYASPIRIN [Suspect]
     Active Substance: ASPIRIN
     Indication: ACUTE MYOCARDIAL INFARCTION
     Dosage: 100 MG, DAILY
     Route: 048
     Dates: start: 20181123, end: 20181224
  2. ROSUVASTATIN CALCIUM. [Suspect]
     Active Substance: ROSUVASTATIN CALCIUM
     Indication: ACUTE MYOCARDIAL INFARCTION
     Dosage: 22.5 MG, DAILY
     Route: 048
     Dates: start: 20181211, end: 20181220
  3. RISPERDAL [Suspect]
     Active Substance: RISPERIDONE
     Indication: POSTRESUSCITATION ENCEPHALOPATHY
     Dosage: 1 MG, TID
     Route: 048
     Dates: start: 20181211, end: 20181223
  4. BISONO [Suspect]
     Active Substance: BISOPROLOL
     Indication: ACUTE MYOCARDIAL INFARCTION
     Dosage: 2 MG, DAILY
     Route: 065
     Dates: start: 20181126, end: 20181226
  5. LANSOPRAZOLE. [Suspect]
     Active Substance: LANSOPRAZOLE
     Indication: ACUTE MYOCARDIAL INFARCTION
     Dosage: 15 MG, DAILY
     Route: 048
     Dates: start: 20181205, end: 20181223
  6. LUNESTA [Suspect]
     Active Substance: ESZOPICLONE
     Indication: POSTRESUSCITATION ENCEPHALOPATHY
     Dosage: 2 MG, DAILY
     Route: 048
     Dates: start: 20181215, end: 20181223
  7. PRASUGREL HYDROCHLORIDE [Suspect]
     Active Substance: PRASUGREL HYDROCHLORIDE
     Indication: ACUTE MYOCARDIAL INFARCTION
     Dosage: 3.75 MG, DAILY
     Route: 048
     Dates: start: 20181123, end: 20181226
  8. FUROSEMIDE. [Suspect]
     Active Substance: FUROSEMIDE
     Indication: ACUTE MYOCARDIAL INFARCTION
     Dosage: 20 MG, DAILY
     Route: 048
     Dates: start: 20181211, end: 20181220

REACTIONS (2)
  - Toxic epidermal necrolysis [Not Recovered/Not Resolved]
  - Pseudomembranous colitis [Not Recovered/Not Resolved]

NARRATIVE: CASE EVENT DATE: 20181219
